FAERS Safety Report 6009106-7 (Version None)
Quarter: 2008Q4

REPORT INFORMATION
  Report Type: 
  Country: None (occurrence: None)
  Receive Date: 20081216
  Receipt Date: 20081202
  Transmission Date: 20090506
  Serious: Yes (Hospitalization)
  Sender: FDA-Public Use
  Company Number: KR-JNJFOC-20081006096

PATIENT
  Age: 64 Year
  Sex: Female
  Weight: 57 kg

DRUGS (18)
  1. DECTIABINE        (DECTIABINE) LYOPHILIZED POWDER [Suspect]
     Indication: MYELODYSPLASTIC SYNDROME
     Dosage: SEE IMAGE
     Route: 042
     Dates: start: 20080609, end: 20080613
  2. DECTIABINE        (DECTIABINE) LYOPHILIZED POWDER [Suspect]
     Indication: MYELODYSPLASTIC SYNDROME
     Dosage: SEE IMAGE
     Route: 042
     Dates: start: 20080707, end: 20080708
  3. DECTIABINE        (DECTIABINE) LYOPHILIZED POWDER [Suspect]
     Indication: MYELODYSPLASTIC SYNDROME
     Dosage: SEE IMAGE
     Route: 042
     Dates: start: 20080717, end: 20080719
  4. DECTIABINE        (DECTIABINE) LYOPHILIZED POWDER [Suspect]
     Indication: MYELODYSPLASTIC SYNDROME
     Dosage: SEE IMAGE
     Route: 042
     Dates: start: 20080922, end: 20080926
  5. DECTIABINE        (DECTIABINE) LYOPHILIZED POWDER [Suspect]
     Indication: MYELODYSPLASTIC SYNDROME
     Dosage: SEE IMAGE
     Route: 042
     Dates: start: 20081020, end: 20081024
  6. MAGNESIUM OXIDE (MAGNESIUM OXIDE) [Concomitant]
  7. LEVOCETRIZINE (LEVOCETIRIZINE) [Concomitant]
  8. HYDROXYZINE [Concomitant]
  9. CIMETIDINE [Concomitant]
  10. CEFIXIME CHEWABLE [Concomitant]
  11. MUPIROCIN [Concomitant]
  12. PREDNICARBATE (PRENDICARBATE) [Concomitant]
  13. CLOBETASOL PROPIONATE [Concomitant]
  14. CITOPIC (CIPROFLOXACIN HYDROCHLORIDE) [Concomitant]
  15. FEXOFENADINE HCL [Concomitant]
  16. PREDNISONE ACETATE (PREDNISONE ACETATE) [Concomitant]
  17. ALMAGATE (ALMAGATE) [Concomitant]
  18. RANITIDINE [Concomitant]

REACTIONS (3)
  - BONE SCAN ABNORMAL [None]
  - MYALGIA [None]
  - PELVIC PAIN [None]
